FAERS Safety Report 13747462 (Version 1)
Quarter: 2017Q3

REPORT INFORMATION
  Report Type: Spontaneous
  Country: IT (occurrence: IT)
  Receive Date: 20170712
  Receipt Date: 20170712
  Transmission Date: 20171127
  Serious: Yes (Hospitalization)
  Sender: FDA-Public Use
  Company Number: IT-BAYER-2017-130771

PATIENT
  Age: 78 Year

DRUGS (5)
  1. PROSTIDE [Concomitant]
     Dosage: UNK
  2. BENUR [Concomitant]
     Active Substance: DOXAZOSIN MESYLATE
     Dosage: UNK
  3. CARDIOASPIRIN 100 MG [Suspect]
     Active Substance: ASPIRIN
     Indication: THROMBOSIS PROPHYLAXIS
     Dosage: 100 MG, QD
     Route: 048
     Dates: start: 20170101, end: 20170407
  4. ATORVASTATIN [Concomitant]
     Active Substance: ATORVASTATIN
     Dosage: UNK
  5. AMLODIPINE [Concomitant]
     Active Substance: AMLODIPINE BESYLATE
     Dosage: UNK

REACTIONS (4)
  - Melaena [Unknown]
  - Abdominal pain [Unknown]
  - Syncope [Unknown]
  - Haematemesis [Unknown]

NARRATIVE: CASE EVENT DATE: 20170407
